FAERS Safety Report 7268918-2 (Version None)
Quarter: 2011Q1

REPORT INFORMATION
  Report Type: 
  Country: None (occurrence: None)
  Receive Date: 20110201
  Receipt Date: 20110117
  Transmission Date: 20110831
  Serious: Yes (Death, Other)
  Sender: FDA-Public Use
  Company Number: DE-GENENTECH-311297

PATIENT
  Sex: Male
  Weight: 72 kg

DRUGS (6)
  1. FENISTIL [Concomitant]
     Indication: PROPHYLAXIS
     Dosage: 4 MG, UNK
     Route: 042
     Dates: start: 20100205, end: 20100727
  2. BENDAMUSTINE [Concomitant]
     Indication: WALDENSTROM'S MACROGLOBULINAEMIA
     Dosage: 100 MG/M2, UNK
     Route: 042
     Dates: start: 20100128, end: 20100630
  3. PARACETAMOL [Concomitant]
     Indication: PROPHYLAXIS
     Dosage: 1000 MG, UNK
     Route: 048
     Dates: start: 20100205, end: 20100727
  4. PREDNISOLONE [Concomitant]
     Indication: PROPHYLAXIS
     Dosage: 100 MG, UNK
     Route: 042
     Dates: start: 20100205, end: 20100727
  5. MABTHERA [Suspect]
     Indication: WALDENSTROM'S MACROGLOBULINAEMIA
     Dosage: 375 MG/M2, Q4W
     Route: 042
     Dates: start: 20100205, end: 20100727
  6. FORTECORTIN [Concomitant]
     Indication: ANTIEMETIC SUPPORTIVE CARE
     Dosage: 8 MG, UNK
     Route: 042
     Dates: start: 20100128, end: 20100630

REACTIONS (3)
  - UROSEPSIS [None]
  - UPPER RESPIRATORY TRACT INFECTION [None]
  - PROGRESSIVE MULTIFOCAL LEUKOENCEPHALOPATHY [None]
